FAERS Safety Report 8525171-7 (Version None)
Quarter: 2012Q3

REPORT INFORMATION
  Report Type: 
  Country: None (occurrence: None)
  Receive Date: 20120720
  Receipt Date: 20120713
  Transmission Date: 20120928
  Serious: Yes (Other)
  Sender: FDA-Public Use
  Company Number: PHHY2011CA88913

PATIENT
  Sex: Female

DRUGS (6)
  1. GILENYA [Suspect]
     Dosage: 0.5 MG, QOD
     Route: 048
  2. GILENYA [Suspect]
     Indication: RELAPSING-REMITTING MULTIPLE SCLEROSIS
     Dosage: 0.5 MG, DAILY
     Route: 048
     Dates: start: 20111005, end: 20111216
  3. GILENYA [Suspect]
     Dosage: 0.5 MG, DAILY
     Route: 048
     Dates: start: 20120115
  4. GILENYA [Suspect]
     Dosage: 0.5 MG, QD
     Route: 048
     Dates: start: 20120116
  5. CLONAZEPAM [Concomitant]
     Dosage: UNK UKN, UNK
  6. ZOPICLONE [Concomitant]
     Dosage: UNK UKN, PRN

REACTIONS (28)
  - PALPITATIONS [None]
  - LYMPHOPENIA [None]
  - LEUKOPENIA [None]
  - AMNESIA [None]
  - PAIN [None]
  - RHINORRHOEA [None]
  - HYPOAESTHESIA [None]
  - SINUS HEADACHE [None]
  - HEADACHE [None]
  - BACK PAIN [None]
  - LACRIMATION INCREASED [None]
  - ERYTHEMA [None]
  - CENTRAL NERVOUS SYSTEM LESION [None]
  - FATIGUE [None]
  - CONSTIPATION [None]
  - NEUTROPENIA [None]
  - DIZZINESS [None]
  - DYSPNOEA [None]
  - NAUSEA [None]
  - NASAL CONGESTION [None]
  - CONJUNCTIVITIS [None]
  - DRUG INEFFECTIVE [None]
  - SPEECH DISORDER [None]
  - DYSARTHRIA [None]
  - COORDINATION ABNORMAL [None]
  - INAPPROPRIATE SCHEDULE OF DRUG ADMINISTRATION [None]
  - ABDOMINAL PAIN [None]
  - PARESIS [None]
